FAERS Safety Report 13430101 (Version 1)
Quarter: 2017Q2

REPORT INFORMATION
  Report Type: Spontaneous
  Country: SE (occurrence: SE)
  Receive Date: 20170412
  Receipt Date: 20170412
  Transmission Date: 20170830
  Serious: Yes (Hospitalization)
  Sender: FDA-Public Use
  Company Number: SE-ABBVIE-17K-150-1937808-00

PATIENT
  Age: 52 Year
  Sex: Female

DRUGS (1)
  1. HUMIRA [Suspect]
     Active Substance: ADALIMUMAB
     Indication: RHEUMATOID ARTHRITIS
     Route: 058
     Dates: start: 20150604, end: 20170128

REACTIONS (3)
  - Hemiparesis [Recovering/Resolving]
  - Epilepsy [Not Recovered/Not Resolved]
  - Meningitis leptospiral [Not Recovered/Not Resolved]

NARRATIVE: CASE EVENT DATE: 20170131
